FAERS Safety Report 9199953 (Version 1)
Quarter: 2013Q1

REPORT INFORMATION
  Report Type: Spontaneous
  Country: US (occurrence: US)
  Receive Date: 20130329
  Receipt Date: 20130329
  Transmission Date: 20140127
  Serious: Yes (Other)
  Sender: FDA-Public Use
  Company Number: US-SANOFI-AVENTIS-2013SA033453

PATIENT
  Age: 83 Year
  Sex: Female

DRUGS (1)
  1. ALLEGRA [Suspect]
     Indication: RHINORRHOEA
     Route: 048

REACTIONS (2)
  - Atrial fibrillation [Unknown]
  - Heart valve incompetence [Unknown]
